FAERS Safety Report 6301580-1 (Version None)
Quarter: 2009Q3

REPORT INFORMATION
  Report Type: 
  Country: None (occurrence: None)
  Receive Date: 20090807
  Receipt Date: 20090729
  Transmission Date: 20100115
  Serious: Yes (Life-Threatening, Hospitalization)
  Sender: FDA-Public Use
  Company Number: US-ABBOTT-09P-163-0588003-00

PATIENT
  Sex: Male
  Weight: 94.3 kg

DRUGS (25)
  1. SYNTHROID [Suspect]
     Indication: DRUG USE FOR UNKNOWN INDICATION
     Route: 048
  2. ALEFACEPT [Suspect]
     Indication: DRUG USE FOR UNKNOWN INDICATION
     Route: 058
     Dates: start: 20090716, end: 20090721
  3. PROGRAF [Suspect]
     Indication: DRUG USE FOR UNKNOWN INDICATION
     Route: 048
     Dates: start: 20090710
  4. VALCYTE [Suspect]
     Indication: DRUG USE FOR UNKNOWN INDICATION
     Route: 048
  5. PLAVIX [Suspect]
     Indication: DRUG USE FOR UNKNOWN INDICATION
  6. ASPIRIN [Suspect]
     Indication: DRUG USE FOR UNKNOWN INDICATION
  7. ASPIRIN [Suspect]
  8. BACTRIM [Suspect]
     Indication: URINARY TRACT INFECTION
     Dosage: 1 DF, QOD
     Route: 048
  9. HEPARIN [Suspect]
     Indication: DRUG USE FOR UNKNOWN INDICATION
  10. PREDNISONE [Concomitant]
     Indication: DRUG USE FOR UNKNOWN INDICATION
     Dates: start: 20090710
  11. AMBIEN [Concomitant]
     Indication: DRUG USE FOR UNKNOWN INDICATION
  12. PRILOSEC [Concomitant]
     Indication: DRUG USE FOR UNKNOWN INDICATION
  13. METOPROLOL TARTRATE [Concomitant]
     Indication: DRUG USE FOR UNKNOWN INDICATION
  14. NORVASC [Concomitant]
     Indication: DRUG USE FOR UNKNOWN INDICATION
  15. LANTUS [Concomitant]
     Indication: DRUG USE FOR UNKNOWN INDICATION
  16. CALCIUM CARBONATE [Concomitant]
     Indication: DRUG USE FOR UNKNOWN INDICATION
  17. DILTIAZEM [Concomitant]
     Indication: DRUG USE FOR UNKNOWN INDICATION
  18. FERROUS GLUCONATE [Concomitant]
     Indication: DRUG USE FOR UNKNOWN INDICATION
  19. LABETALOL HCL [Concomitant]
     Indication: DRUG USE FOR UNKNOWN INDICATION
  20. NEPHROCAPS [Concomitant]
     Indication: DRUG USE FOR UNKNOWN INDICATION
  21. RENAGEL [Concomitant]
     Indication: DRUG USE FOR UNKNOWN INDICATION
  22. NOVOLOG [Concomitant]
     Indication: DRUG USE FOR UNKNOWN INDICATION
  23. ROSUVASTATIN CALCIUM [Concomitant]
     Indication: DRUG USE FOR UNKNOWN INDICATION
  24. DILAUDID [Concomitant]
     Indication: DRUG USE FOR UNKNOWN INDICATION
  25. DOPAMINE HCL [Concomitant]
     Indication: DRUG USE FOR UNKNOWN INDICATION

REACTIONS (1)
  - THROMBOCYTOPENIA [None]
